FAERS Safety Report 19790298 (Version 2)
Quarter: 2021Q4

REPORT INFORMATION
  Report Type: Spontaneous
  Country: US (occurrence: US)
  Receive Date: 20210906
  Receipt Date: 20211014
  Transmission Date: 20220303
  Serious: Yes (Hospitalization, Disabling)
  Sender: FDA-Public Use
  Company Number: US-BIOGEN-2021BI01043639

PATIENT
  Age: 8 Year
  Sex: Female
  Weight: 37 kg

DRUGS (44)
  1. SPINRAZA [Suspect]
     Active Substance: NUSINERSEN
     Indication: Spinal muscular atrophy
     Route: 065
     Dates: start: 201807, end: 20200813
  2. SPINRAZA [Suspect]
     Active Substance: NUSINERSEN
     Route: 037
     Dates: start: 201807, end: 20190729
  3. SPINRAZA [Suspect]
     Active Substance: NUSINERSEN
     Route: 037
     Dates: start: 20191121, end: 20191121
  4. SPINRAZA [Suspect]
     Active Substance: NUSINERSEN
     Route: 037
     Dates: start: 20200319, end: 20200319
  5. SPINRAZA [Suspect]
     Active Substance: NUSINERSEN
     Route: 037
     Dates: start: 20200813, end: 20200813
  6. APITEGROMAB [Suspect]
     Active Substance: APITEGROMAB
     Indication: Spinal muscular atrophy
     Route: 042
     Dates: start: 20190823, end: 20190823
  7. APITEGROMAB [Suspect]
     Active Substance: APITEGROMAB
     Route: 042
     Dates: start: 20190919, end: 20190919
  8. APITEGROMAB [Suspect]
     Active Substance: APITEGROMAB
     Route: 042
     Dates: start: 20191017, end: 20191017
  9. APITEGROMAB [Suspect]
     Active Substance: APITEGROMAB
     Route: 042
     Dates: start: 20191114, end: 20191114
  10. APITEGROMAB [Suspect]
     Active Substance: APITEGROMAB
     Route: 042
     Dates: start: 20200107, end: 20200107
  11. APITEGROMAB [Suspect]
     Active Substance: APITEGROMAB
     Route: 042
     Dates: start: 20200205, end: 20200205
  12. APITEGROMAB [Suspect]
     Active Substance: APITEGROMAB
     Route: 042
     Dates: start: 20200305, end: 20200305
  13. APITEGROMAB [Suspect]
     Active Substance: APITEGROMAB
     Route: 042
     Dates: start: 20200402, end: 20200402
  14. APITEGROMAB [Suspect]
     Active Substance: APITEGROMAB
     Route: 042
     Dates: start: 20200430, end: 20200430
  15. APITEGROMAB [Suspect]
     Active Substance: APITEGROMAB
     Route: 042
     Dates: start: 20200528, end: 20200528
  16. APITEGROMAB [Suspect]
     Active Substance: APITEGROMAB
     Route: 042
     Dates: start: 20200625, end: 20200625
  17. APITEGROMAB [Suspect]
     Active Substance: APITEGROMAB
     Route: 042
     Dates: start: 20200806, end: 20200806
  18. MOMETASONE [Concomitant]
     Active Substance: MOMETASONE
     Indication: Sinus congestion
     Dosage: 1 PUFF DAILY
     Route: 065
     Dates: start: 20170120
  19. CHOLECALCIFEROL [Concomitant]
     Active Substance: CHOLECALCIFEROL
     Indication: Osteopenia
     Dosage: ONCE PER WEEK
     Route: 065
     Dates: start: 20200111
  20. CALCIUM [Concomitant]
     Active Substance: CALCIUM
     Indication: Osteopenia
     Route: 065
     Dates: start: 20200603
  21. ACETAMINOPHEN [Concomitant]
     Active Substance: ACETAMINOPHEN
     Indication: Arthralgia
     Dosage: AS NEEDED
     Route: 048
     Dates: start: 2016
  22. ACETAMINOPHEN [Concomitant]
     Active Substance: ACETAMINOPHEN
     Dosage: Q4H
     Route: 048
     Dates: start: 20200305, end: 20200305
  23. ACETAMINOPHEN [Concomitant]
     Active Substance: ACETAMINOPHEN
     Route: 048
     Dates: start: 20200617, end: 20200618
  24. ACETAMINOPHEN [Concomitant]
     Active Substance: ACETAMINOPHEN
     Route: 048
     Dates: start: 20200813
  25. MELATONIN [Concomitant]
     Active Substance: MELATONIN
     Indication: Insomnia
     Dosage: DAILY
     Route: 048
     Dates: start: 201904, end: 20190909
  26. AMOXICILLIN [Concomitant]
     Active Substance: AMOXICILLIN
     Indication: Alpha haemolytic streptococcal infection
     Route: 048
     Dates: start: 20200102, end: 20200112
  27. AMOXICILLIN [Concomitant]
     Active Substance: AMOXICILLIN
     Route: 048
     Dates: start: 20200305, end: 20200312
  28. Maximum strength tums [Concomitant]
     Indication: Vomiting
     Dosage: ONE TIME ONLY
     Route: 048
     Dates: start: 20200203, end: 20200203
  29. Maximum strength tums [Concomitant]
     Dosage: ONE TIME ONLY
     Route: 048
     Dates: start: 20200320, end: 20200320
  30. Maximum strength tums [Concomitant]
     Dosage: 4 TABLETS
     Route: 048
     Dates: start: 20200613, end: 20200619
  31. CIPRODEX [Concomitant]
     Active Substance: CIPROFLOXACIN HYDROCHLORIDE\DEXAMETHASONE
     Indication: Ear infection
     Dosage: 4 DROPS
     Route: 001
     Dates: start: 20200306, end: 20200313
  32. RECLAST [Concomitant]
     Active Substance: ZOLEDRONIC ACID
     Indication: Osteopenia
     Dosage: ONE TIME ONLY
     Route: 042
     Dates: start: 20200616, end: 20200616
  33. CEFAZOLIN [Concomitant]
     Active Substance: CEFAZOLIN
     Indication: Infection prophylaxis
     Dosage: 4 TIMES PER DAY
     Route: 042
     Dates: start: 20200814, end: 20200814
  34. FENTANYL [Concomitant]
     Active Substance: FENTANYL
     Indication: Procedural pain
     Dosage: DAILY 40 UG
     Route: 042
     Dates: start: 20200813, end: 20200813
  35. POLYETHYLENE GLYCOLS [Concomitant]
     Active Substance: POLYETHYLENE GLYCOLS
     Indication: Procedural pain
     Dosage: .5 PACKET DAILY
     Route: 048
     Dates: start: 20200814, end: 20200816
  36. HYDROMORPHONE [Concomitant]
     Active Substance: HYDROMORPHONE
     Indication: Procedural pain
     Dosage: Q2H PRN
     Route: 042
     Dates: start: 20200814, end: 20200815
  37. HYDROMORPHONE [Concomitant]
     Active Substance: HYDROMORPHONE
     Dosage: Q2H PRN
     Route: 042
     Dates: start: 20200815, end: 20200815
  38. ONDANSETRON [Concomitant]
     Active Substance: ONDANSETRON
     Indication: Prophylaxis of nausea and vomiting
     Dosage: Q4H PRN
     Route: 042
     Dates: start: 20200815, end: 20200815
  39. ONDANSETRON [Concomitant]
     Active Substance: ONDANSETRON
     Dosage: Q2H PRN
     Route: 042
     Dates: start: 20200815, end: 20200815
  40. SODIUM CHLORIDE [Concomitant]
     Active Substance: SODIUM CHLORIDE
     Indication: Procedural pain
     Dosage: ONCE
     Route: 037
     Dates: start: 20200814, end: 20200814
  41. Ropivacaine 5% [Concomitant]
     Indication: Procedural pain
     Dosage: ONCE
     Route: 037
     Dates: start: 20200814, end: 20200814
  42. CLONIDINE [Concomitant]
     Active Substance: CLONIDINE
     Indication: Procedural pain
     Dosage: ONCE
     Route: 037
     Dates: start: 20200814, end: 20200814
  43. NASONEX [Concomitant]
     Active Substance: MOMETASONE FUROATE
     Indication: Sinus congestion
     Dosage: 1 PUFF DAILY
     Route: 065
     Dates: start: 20170120
  44. VITAMIN D3 [Concomitant]
     Active Substance: CHOLECALCIFEROL
     Indication: Osteopenia
     Dosage: ONCE PER WEEK
     Route: 065
     Dates: start: 20200111

REACTIONS (1)
  - Developmental hip dysplasia [Recovered/Resolved]

NARRATIVE: CASE EVENT DATE: 20200527
